FAERS Safety Report 9045273 (Version 1)
Quarter: 2013Q1

REPORT INFORMATION
  Report Type: Report from Study
  Country: US (occurrence: US)
  Receive Date: 20130131
  Receipt Date: 20130131
  Transmission Date: 20140127
  Serious: No
  Sender: FDA-Public Use
  Company Number: US-ABBOTT-12P-163-0991199-00

PATIENT
  Sex: Female

DRUGS (2)
  1. HUMIRA [Suspect]
     Indication: CROHN^S DISEASE
     Dosage: DAY 1, INJECT 4 PENS
     Route: 058
     Dates: start: 20120918
  2. HUMIRA [Suspect]
     Dosage: DAY 15, INJECT 2 PENS AS DIRECTED
     Route: 058

REACTIONS (1)
  - Injection site bruising [Recovering/Resolving]
